FAERS Safety Report 9805672 (Version 1)
Quarter: 2014Q1

REPORT INFORMATION
  Report Type: Report from Study
  Country: AU (occurrence: AU)
  Receive Date: 20140109
  Receipt Date: 20140109
  Transmission Date: 20141002
  Serious: Yes (Hospitalization)
  Sender: FDA-Public Use
  Company Number: AU-AMGEN-AUSCT2014000873

PATIENT
  Age: 68 Year
  Sex: Female
  Weight: 70 kg

DRUGS (9)
  1. PEGFILGRASTIM [Suspect]
     Indication: NEUTROPENIA
     Dosage: 6 MG, Q3WK
     Route: 058
     Dates: start: 20131205
  2. CYCLOPHOSPHAMIDE [Concomitant]
     Indication: BREAST CANCER
     Dosage: 1050 MG, Q3WK
     Route: 042
     Dates: start: 20131204
  3. DOCETAXEL [Concomitant]
     Indication: BREAST CANCER
     Dosage: 130 MG, Q3WK
     Route: 042
     Dates: start: 20131204
  4. PARACETAMOL [Concomitant]
  5. TROPISETRON [Concomitant]
  6. RABEPRAZOLE [Concomitant]
  7. FLUOXETINE [Concomitant]
  8. SIFROL [Concomitant]
  9. TEMAZEPAM [Concomitant]

REACTIONS (1)
  - Back pain [Recovered/Resolved]
